FAERS Safety Report 4615536-8 (Version None)
Quarter: 2005Q1

REPORT INFORMATION
  Report Type: 
  Country: None (occurrence: None)
  Receive Date: 20050317
  Receipt Date: 20050309
  Transmission Date: 20050727
  Serious: Yes (Hospitalization)
  Sender: FDA-Public Use
  Company Number: TPA2005A00279

PATIENT
  Age: 52 Year
  Sex: Female
  Weight: 122.9248 kg

DRUGS (5)
  1. ACTOS [Suspect]
     Indication: DIABETES MELLITUS NON-INSULIN-DEPENDENT
     Dosage: 30 MG, 1 IN 1 D, PER ORAL
     Route: 048
  2. AVAPRO [Concomitant]
  3. PAXIL [Concomitant]
  4. UNKNOWN WATER PILL (DIURETICS) [Concomitant]
  5. INSULIN (INSULIN N/A/) [Concomitant]

REACTIONS (5)
  - APHONIA [None]
  - CELLULITIS [None]
  - LEG AMPUTATION [None]
  - LOWER RESPIRATORY TRACT INFECTION [None]
  - OPEN WOUND [None]
